FAERS Safety Report 14571288 (Version 2)
Quarter: 2018Q3

REPORT INFORMATION
  Report Type: Spontaneous
  Country: US (occurrence: US)
  Receive Date: 20180226
  Receipt Date: 20180830
  Transmission Date: 20181010
  Serious: Yes (Life-Threatening, Hospitalization, Other)
  Sender: FDA-Public Use
  Company Number: PHEH2018US007171

PATIENT
  Age: 62 Year
  Sex: Female
  Weight: 58 kg

DRUGS (14)
  1. SYNTHROID [Concomitant]
     Active Substance: LEVOTHYROXINE SODIUM
     Indication: PRODUCT USED FOR UNKNOWN INDICATION
     Dosage: 112 UG, QD
     Route: 048
  2. TURMERIC [Concomitant]
     Active Substance: HERBALS\TURMERIC
     Indication: PRODUCT USED FOR UNKNOWN INDICATION
     Dosage: UNK UNK, QD
     Route: 048
  3. VITAMIN D3 [Concomitant]
     Active Substance: CHOLECALCIFEROL
     Indication: PRODUCT USED FOR UNKNOWN INDICATION
     Dosage: 2000 U, QD
     Route: 048
  4. COENZYME Q10 [Concomitant]
     Active Substance: UBIDECARENONE
     Indication: PRODUCT USED FOR UNKNOWN INDICATION
     Dosage: UNK UNK, QD
     Route: 048
  5. VITAMIN C [Concomitant]
     Active Substance: ASCORBIC ACID
     Indication: PRODUCT USED FOR UNKNOWN INDICATION
     Dosage: 100 MG, QD
     Route: 048
  6. MULTI?VIT [Concomitant]
     Active Substance: VITAMINS
     Indication: PRODUCT USED FOR UNKNOWN INDICATION
     Dosage: UNK UNK, QD
     Route: 048
  7. COMPAZINE [Concomitant]
     Active Substance: PROCHLORPERAZINE MALEATE
     Indication: NAUSEA
     Dosage: 1 DF, Q6H (EVERY 4 TO 6 HOURS) PRN
     Route: 048
  8. FISH OIL OMEGA 3 [Concomitant]
     Active Substance: FISH OIL
     Indication: PRODUCT USED FOR UNKNOWN INDICATION
     Dosage: 1 DF, QD
     Route: 048
  9. CRESTOR [Concomitant]
     Active Substance: ROSUVASTATIN CALCIUM
     Indication: PRODUCT USED FOR UNKNOWN INDICATION
     Dosage: 1 DF, QD
     Route: 048
  10. DABRAFENIB [Suspect]
     Active Substance: DABRAFENIB
     Indication: LUNG CANCER METASTATIC
     Dosage: 150 MG, BID
     Route: 048
     Dates: start: 20180104, end: 20180114
  11. TRAMETINIB [Suspect]
     Active Substance: TRAMETINIB
     Indication: LUNG CANCER METASTATIC
     Dosage: 2 MG, QD
     Route: 048
     Dates: start: 20180104, end: 20180114
  12. ONDANSETRON [Concomitant]
     Active Substance: ONDANSETRON
     Indication: NAUSEA
     Dosage: 8 MG, Q8H (PRN)
     Route: 048
  13. ONDANSETRON [Concomitant]
     Active Substance: ONDANSETRON
     Indication: VOMITING
  14. SINGULAIR [Concomitant]
     Active Substance: MONTELUKAST SODIUM
     Indication: PRODUCT USED FOR UNKNOWN INDICATION
     Dosage: 1 OT, QHS
     Route: 048

REACTIONS (50)
  - Tachycardia [Unknown]
  - Glomerular filtration rate decreased [Unknown]
  - Neutrophil count increased [Unknown]
  - Arthralgia [Unknown]
  - Rash erythematous [Unknown]
  - Blood creatinine increased [Unknown]
  - Dry skin [Unknown]
  - White blood cell count decreased [Unknown]
  - Platelet count decreased [Unknown]
  - Rash [Recovered/Resolved with Sequelae]
  - Rash vesicular [Unknown]
  - Skin necrosis [Unknown]
  - Hypovolaemia [Unknown]
  - Lymphocyte count decreased [Unknown]
  - Protein total increased [Unknown]
  - Basophil count increased [Unknown]
  - Blood magnesium decreased [Unknown]
  - Bowel movement irregularity [Unknown]
  - Skin hyperpigmentation [Unknown]
  - Haematocrit decreased [Unknown]
  - Blood pressure decreased [Unknown]
  - Cough [Unknown]
  - Liver function test abnormal [Unknown]
  - Pyrexia [Unknown]
  - Skin exfoliation [Unknown]
  - Mean cell haemoglobin decreased [Unknown]
  - Mean cell volume decreased [Unknown]
  - Blood pressure increased [Unknown]
  - Headache [Unknown]
  - Blood sodium decreased [Unknown]
  - Lip oedema [Recovered/Resolved]
  - Alopecia [Recovering/Resolving]
  - Monocyte count increased [Unknown]
  - Mean cell haemoglobin concentration increased [Unknown]
  - Drug hypersensitivity [Unknown]
  - Aspartate aminotransferase increased [Unknown]
  - Band neutrophil count increased [Unknown]
  - Blood calcium decreased [Unknown]
  - Erythema [Unknown]
  - Oedema mouth [Recovered/Resolved]
  - Blood glucose increased [Unknown]
  - Blood urea increased [Unknown]
  - Dysphagia [Unknown]
  - Blood alkaline phosphatase increased [Unknown]
  - Oropharyngeal oedema [Recovered/Resolved]
  - Stevens-Johnson syndrome [Recovered/Resolved]
  - Dermatitis exfoliative generalised [Unknown]
  - Blood chloride decreased [Unknown]
  - Blood albumin decreased [Unknown]
  - Haemoglobin decreased [Unknown]

NARRATIVE: CASE EVENT DATE: 20180113
